FAERS Safety Report 11578895 (Version 3)
Quarter: 2015Q4

REPORT INFORMATION
  Report Type: Report from Study
  Country: US (occurrence: US)
  Receive Date: 20150930
  Receipt Date: 20151211
  Transmission Date: 20160304
  Serious: Yes (Hospitalization, Other)
  Sender: FDA-Public Use
  Company Number: US-BAYER-2015-415584

PATIENT
  Age: 73 Year
  Sex: Female

DRUGS (2)
  1. NEXAVAR [Suspect]
     Active Substance: SORAFENIB
     Indication: HEPATOCELLULAR CARCINOMA
     Dosage: 200 MG, BID
     Route: 048
     Dates: start: 20150914, end: 201510
  2. NEXAVAR [Suspect]
     Active Substance: SORAFENIB
     Indication: HEPATOCELLULAR CARCINOMA
     Dosage: 400 MG, BID
     Route: 048
     Dates: start: 20150825, end: 20150913

REACTIONS (12)
  - Erythema [None]
  - Skin exfoliation [None]
  - Dizziness [None]
  - Diarrhoea [None]
  - Laboratory test abnormal [None]
  - Blood pressure increased [Recovering/Resolving]
  - Anxiety [Recovering/Resolving]
  - Pain in extremity [None]
  - Weight decreased [None]
  - Flushing [None]
  - Blister [None]
  - Insomnia [None]

NARRATIVE: CASE EVENT DATE: 201508
